FAERS Safety Report 6246883-4 (Version None)
Quarter: 2009Q2

REPORT INFORMATION
  Report Type: 
  Country: None (occurrence: None)
  Receive Date: 20090624
  Receipt Date: 20090624
  Transmission Date: 20091009
  Serious: Yes (Other)
  Sender: FDA-Public Use
  Company Number: None

PATIENT
  Age: 92 Year
  Sex: Female

DRUGS (1)
  1. RECLAST [Suspect]
     Indication: OSTEOPOROSIS PROPHYLAXIS
     Dosage: IV INFUSION
     Route: 042
     Dates: start: 20090325

REACTIONS (3)
  - ASTHENIA [None]
  - BACK PAIN [None]
  - FATIGUE [None]
